FAERS Safety Report 17802041 (Version 1)
Quarter: 2020Q2

REPORT INFORMATION
  Report Type: Spontaneous
  Country: US (occurrence: US)
  Receive Date: 20200518
  Receipt Date: 20200518
  Transmission Date: 20200714
  Serious: No
  Sender: FDA-Public Use
  Company Number: None

PATIENT
  Age: 31 Year
  Sex: Male
  Weight: 80.55 kg

DRUGS (1)
  1. XARELTO [Suspect]
     Active Substance: RIVAROXABAN

REACTIONS (4)
  - Thrombosis [None]
  - Gynaecomastia [None]
  - Therapy interrupted [None]
  - Nipple enlargement [None]

NARRATIVE: CASE EVENT DATE: 20200513
